FAERS Safety Report 7362192-4 (Version None)
Quarter: 2011Q1

REPORT INFORMATION
  Report Type: 
  Country: None (occurrence: None)
  Receive Date: 20110315
  Receipt Date: 20110315
  Transmission Date: 20110831
  Serious: Yes (Other)
  Sender: FDA-Public Use
  Company Number: None

PATIENT
  Sex: Female
  Weight: 45.3597 kg

DRUGS (1)
  1. TARCEVA [Suspect]
     Indication: BLOOD CALCIUM
     Dosage: 150MG DAILY P.O.
     Route: 048
     Dates: start: 20100531, end: 20100621

REACTIONS (1)
  - ARTHRALGIA [None]
